FAERS Safety Report 4709719-6 (Version None)
Quarter: 2005Q2

REPORT INFORMATION
  Report Type: 
  Country: None (occurrence: None)
  Receive Date: 20050629
  Receipt Date: 20050517
  Transmission Date: 20051028
  Serious: No
  Sender: FDA-Public Use
  Company Number: 05P-163-0300823-00

PATIENT
  Age: 69 Year
  Sex: Female
  Weight: 52.1637 kg

DRUGS (9)
  1. HUMIRA [Suspect]
     Indication: RHEUMATOID ARTHRITIS
     Dosage: 40 MG, 1 IN 2 WK, SUBCUTANEOUS
     Route: 058
     Dates: start: 20050412
  2. IPRATROPIUM BROMIDE [Concomitant]
  3. METHOTREXATE [Concomitant]
  4. PREDNISONE TAB [Concomitant]
  5. LORATADINE [Concomitant]
  6. MOMETASONE FUROATE [Concomitant]
  7. IBUPROFEN [Concomitant]
  8. ASPIRIN [Concomitant]
  9. MULTI-VITAMINS [Concomitant]

REACTIONS (1)
  - SINUSITIS [None]
